FAERS Safety Report 6217428-X (Version None)
Quarter: 2009Q2

REPORT INFORMATION
  Report Type: 
  Country: None (occurrence: None)
  Receive Date: 20090608
  Receipt Date: 20081002
  Transmission Date: 20091009
  Serious: No
  Sender: FDA-Public Use
  Company Number: A0750475A

PATIENT
  Sex: Female

DRUGS (1)
  1. WELLBUTRIN XL [Suspect]
     Indication: DEPRESSION
     Dosage: 150MG PER DAY
     Route: 048
     Dates: start: 20080901, end: 20081001

REACTIONS (1)
  - URTICARIA [None]
